FAERS Safety Report 17447400 (Version 1)
Quarter: 2020Q1

REPORT INFORMATION
  Report Type: Spontaneous
  Country: JP (occurrence: JP)
  Receive Date: 20200221
  Receipt Date: 20200221
  Transmission Date: 20200409
  Serious: Yes (Other)
  Sender: FDA-Public Use
  Company Number: JP-009507513-2002JPN001847J

PATIENT
  Age: 86 Year
  Sex: Female

DRUGS (4)
  1. LULLAN [Concomitant]
     Active Substance: PEROSPIRONE HYDROCHLORIDE
     Dosage: UNK
     Route: 048
  2. MEMARY [Concomitant]
     Active Substance: MEMANTINE HYDROCHLORIDE
     Dosage: UNK
     Route: 048
  3. LUNESTA [Concomitant]
     Active Substance: ESZOPICLONE
     Dosage: UNK
     Route: 048
  4. BELSOMRA [Suspect]
     Active Substance: SUVOREXANT
     Indication: INSOMNIA
     Dosage: 15 MILLIGRAM, QD
     Route: 048
     Dates: start: 20200201, end: 20200205

REACTIONS (1)
  - Suicidal ideation [Recovering/Resolving]

NARRATIVE: CASE EVENT DATE: 20200201
